FAERS Safety Report 25745385 (Version 1)
Quarter: 2025Q3

REPORT INFORMATION
  Report Type: Spontaneous
  Country: US (occurrence: US)
  Receive Date: 20250901
  Receipt Date: 20250901
  Transmission Date: 20251021
  Serious: Yes (Other)
  Sender: AUROBINDO
  Company Number: US-AUROBINDO-AUR-APL-2025-044163

PATIENT
  Age: 60 Year
  Sex: Female

DRUGS (3)
  1. METHOTREXATE [Suspect]
     Active Substance: METHOTREXATE
     Indication: Cutaneous T-cell lymphoma
     Route: 065
  2. BEXAROTENE [Suspect]
     Active Substance: BEXAROTENE
     Indication: Cutaneous T-cell lymphoma
     Route: 065
  3. BRENTUXIMAB [Suspect]
     Active Substance: BRENTUXIMAB
     Indication: Cutaneous T-cell lymphoma
     Route: 065

REACTIONS (1)
  - Drug ineffective [Unknown]
